FAERS Safety Report 22231606 (Version 2)
Quarter: 2023Q2

REPORT INFORMATION
  Report Type: Spontaneous
  Country: US (occurrence: US)
  Receive Date: 20230420
  Receipt Date: 20230612
  Transmission Date: 20230721
  Serious: No
  Sender: FDA-Public Use
  Company Number: US-drreddys-SPO/USA/23/0162760

PATIENT
  Age: 33 Year
  Sex: Female

DRUGS (2)
  1. NICOTINE [Suspect]
     Active Substance: NICOTINE
     Indication: Product used for unknown indication
     Route: 062
  2. NICOTINE [Suspect]
     Active Substance: NICOTINE
     Route: 062

REACTIONS (4)
  - Application site rash [Recovering/Resolving]
  - Application site erythema [Recovering/Resolving]
  - Product adhesion issue [Unknown]
  - Underdose [Unknown]
